FAERS Safety Report 5886223-3 (Version None)
Quarter: 2008Q3

REPORT INFORMATION
  Report Type: 
  Country: None (occurrence: None)
  Receive Date: 20080917
  Receipt Date: 20080903
  Transmission Date: 20090109
  Serious: Yes (Hospitalization)
  Sender: FDA-Public Use
  Company Number: ES-ELI_LILLY_AND_COMPANY-ES200809001167

PATIENT
  Age: 68 Year
  Sex: Male

DRUGS (3)
  1. FORTEO [Suspect]
     Indication: OSTEOPOROSIS
     Dosage: 20 UG, UNKNOWN
     Route: 058
     Dates: start: 20080807, end: 20080903
  2. PROZAC [Suspect]
     Indication: DEPRESSION
     Dosage: UNK, UNKNOWN
     Route: 048
     Dates: start: 20080901, end: 20080902
  3. URBASON                                 /GFR/ [Concomitant]
     Dosage: 16 MG, AS NEEDED
     Route: 065

REACTIONS (7)
  - ABDOMINAL DISCOMFORT [None]
  - AEROPHAGIA [None]
  - DUODENAL ULCER [None]
  - DYSPEPSIA [None]
  - FLATULENCE [None]
  - HIATUS HERNIA [None]
  - WEIGHT DECREASED [None]
